FAERS Safety Report 18687204 (Version 1)
Quarter: 2020Q4

REPORT INFORMATION
  Report Type: Report from Study
  Country: US (occurrence: US)
  Receive Date: 20201231
  Receipt Date: 20201231
  Transmission Date: 20210114
  Serious: No
  Sender: FDA-Public Use
  Company Number: US-IPSEN BIOPHARMACEUTICALS, INC.-2018-02835

PATIENT
  Age: 7 Year
  Sex: Female
  Weight: 20.3 kg

DRUGS (18)
  1. SENNA [Concomitant]
     Active Substance: SENNA LEAF\SENNOSIDES\SENNOSIDES A AND B
     Indication: GASTROINTESTINAL HYPOMOTILITY
     Dates: start: 20170919
  2. CUVPOSA [Concomitant]
     Active Substance: GLYCOPYRROLATE
     Indication: SALIVARY HYPERSECRETION
     Dates: start: 20141219
  3. MAGNESIUM HYDROXIDE. [Concomitant]
     Active Substance: MAGNESIUM HYDROXIDE
     Indication: GASTROINTESTINAL HYPOMOTILITY
     Dates: start: 20130730
  4. TOPIRAMATE. [Concomitant]
     Active Substance: TOPIRAMATE
     Indication: SEIZURE
     Dates: start: 20160525
  5. DOCUSATE SODIUM. [Concomitant]
     Active Substance: DOCUSATE SODIUM
     Indication: GASTROINTESTINAL HYPOMOTILITY
     Route: 054
     Dates: start: 20140812
  6. VALPROIC [Concomitant]
     Active Substance: VALPROIC ACID
     Indication: SEIZURE
     Dates: start: 20150120
  7. CETRIZINE [Concomitant]
     Active Substance: CETIRIZINE HYDROCHLORIDE
     Indication: HYPERSENSITIVITY
     Route: 048
     Dates: start: 20171115, end: 20171119
  8. MIRALAX [Concomitant]
     Active Substance: POLYETHYLENE GLYCOL 3350
     Indication: CONSTIPATION
     Dates: start: 20180321
  9. DYSPORT [Suspect]
     Active Substance: ABOBOTULINUMTOXINA
     Indication: MUSCLE SPASTICITY
  10. ACETAMINOPHEN. [Concomitant]
     Active Substance: ACETAMINOPHEN
     Dosage: PRN- AS NEEDED
     Dates: start: 20171115
  11. DIAZEPAM. [Concomitant]
     Active Substance: DIAZEPAM
     Indication: SEIZURE
     Dosage: PRN- AS NEEDED
     Route: 054
     Dates: start: 20140702
  12. DYSPORT [Suspect]
     Active Substance: ABOBOTULINUMTOXINA
     Indication: OFF LABEL USE
  13. TOPIRAMATE. [Concomitant]
     Active Substance: TOPIRAMATE
     Dates: start: 20170418
  14. FLONASE [Concomitant]
     Active Substance: FLUTICASONE PROPIONATE
     Indication: HYPERSENSITIVITY
     Route: 055
     Dates: start: 20171115, end: 20171119
  15. ACETAMINOPHEN. [Concomitant]
     Active Substance: ACETAMINOPHEN
     Indication: PYREXIA
     Dosage: PRN- AS NEEDED
     Dates: start: 20120506, end: 20171115
  16. DYSPORT [Suspect]
     Active Substance: ABOBOTULINUMTOXINA
     Indication: MUSCLE SPASTICITY
     Dosage: 600 INTERNATIONAL UNITS
     Route: 030
     Dates: start: 20171018, end: 20171018
  17. TOPIRAMATE. [Concomitant]
     Active Substance: TOPIRAMATE
     Dates: start: 20170418
  18. PHENOBARBITAL. [Concomitant]
     Active Substance: PHENOBARBITAL
     Indication: SEIZURE
     Dates: start: 20110323

REACTIONS (3)
  - Off label use [Unknown]
  - Upper respiratory tract infection [Recovered/Resolved]
  - Lip injury [Recovered/Resolved]

NARRATIVE: CASE EVENT DATE: 20171018
